FAERS Safety Report 5281149-0 (Version None)
Quarter: 2007Q1

REPORT INFORMATION
  Report Type: 
  Country: None (occurrence: None)
  Receive Date: 20070323
  Receipt Date: 20070307
  Transmission Date: 20070707
  Serious: Yes (Death)
  Sender: FDA-Public Use
  Company Number: DEPFP-P-20070002

PATIENT
  Sex: Female

DRUGS (1)
  1. NAVELBINE [Suspect]
     Indication: BREAST CANCER METASTATIC
     Dosage: 0 MG/M2 DAILY IV
     Route: 042
     Dates: start: 20061220, end: 20061227

REACTIONS (6)
  - ANOREXIA [None]
  - DIARRHOEA [None]
  - MALIGNANT NEOPLASM PROGRESSION [None]
  - METASTASIS [None]
  - PULMONARY OEDEMA [None]
  - SNORING [None]
